FAERS Safety Report 8029106-5 (Version None)
Quarter: 2012Q1

REPORT INFORMATION
  Report Type: 
  Country: None (occurrence: None)
  Receive Date: 20120106
  Receipt Date: 20120103
  Transmission Date: 20120608
  Serious: Yes (Hospitalization, Other)
  Sender: FDA-Public Use
  Company Number: US-ABBOTT-10P-163-0661045-00

PATIENT
  Sex: Male
  Weight: 72.64 kg

DRUGS (18)
  1. HUMIRA [Suspect]
     Indication: RHEUMATOID ARTHRITIS
     Route: 058
     Dates: start: 20050101, end: 20100601
  2. NORVASC [Concomitant]
     Indication: PRODUCT USED FOR UNKNOWN INDICATION
  3. OXYCODONE HCL [Concomitant]
     Indication: PAIN
  4. CELEBREX [Concomitant]
     Indication: RHEUMATOID ARTHRITIS
  5. POTASSIUM CHLORIDE [Concomitant]
     Indication: PRODUCT USED FOR UNKNOWN INDICATION
  6. VITAMIN B-12 [Concomitant]
     Indication: ANAEMIA
     Route: 050
  7. FLEXERIL [Concomitant]
     Indication: MYALGIA
  8. ZOCOR [Concomitant]
     Indication: PRODUCT USED FOR UNKNOWN INDICATION
  9. MULTI-VITAMIN [Concomitant]
     Indication: PRODUCT USED FOR UNKNOWN INDICATION
  10. MECLIZINE [Concomitant]
     Indication: VERTIGO
  11. ASPIRIN [Concomitant]
     Indication: PRODUCT USED FOR UNKNOWN INDICATION
  12. BYSTOLIC [Concomitant]
     Indication: PRODUCT USED FOR UNKNOWN INDICATION
  13. LUCOBURN (SUPER FOLIC ACID) [Concomitant]
     Indication: PRODUCT USED FOR UNKNOWN INDICATION
  14. AVINZA [Concomitant]
     Indication: PAIN
  15. HUMIRA [Suspect]
     Route: 058
     Dates: start: 20100801
  16. CARDURA [Concomitant]
     Indication: PRODUCT USED FOR UNKNOWN INDICATION
  17. METHOTREXATE [Concomitant]
     Indication: PRODUCT USED FOR UNKNOWN INDICATION
  18. CALCIUM WITH VITAMIN D [Concomitant]
     Indication: RHEUMATOID ARTHRITIS

REACTIONS (6)
  - CORONARY ARTERY OCCLUSION [None]
  - DRUG DOSE OMISSION [None]
  - PAIN IN EXTREMITY [None]
  - CHEST PAIN [None]
  - IMPAIRED HEALING [None]
  - NASOPHARYNGITIS [None]
